FAERS Safety Report 24709340 (Version 1)
Quarter: 2024Q4

REPORT INFORMATION
  Report Type: Spontaneous
  Country: TR (occurrence: TR)
  Receive Date: 20241208
  Receipt Date: 20241208
  Transmission Date: 20250115
  Serious: Yes (Death, Other)
  Sender: SINOTHERAPEUTICS INC.
  Company Number: TR-SNT-000412

PATIENT
  Age: 68 Year
  Sex: Male

DRUGS (2)
  1. POSACONAZOLE [Suspect]
     Active Substance: POSACONAZOLE
     Indication: Antifungal prophylaxis
     Route: 065
     Dates: start: 20220723
  2. CYTARABINE [Concomitant]
     Active Substance: CYTARABINE
     Indication: Product used for unknown indication
     Dosage: 200 MG PER M2?PER DAY FOR 7 DAYS
     Route: 065
     Dates: start: 20220720

REACTIONS (6)
  - Respiratory failure [Unknown]
  - Tumour lysis syndrome [Unknown]
  - Hyperbilirubinaemia [Unknown]
  - Mucormycosis [Unknown]
  - Pneumonia [Fatal]
  - Sepsis [Fatal]
